FAERS Safety Report 15047993 (Version 1)
Quarter: 2018Q2

REPORT INFORMATION
  Report Type: Report from Study
  Country: DE (occurrence: DE)
  Receive Date: 20180622
  Receipt Date: 20180622
  Transmission Date: 20180711
  Serious: Yes (Other)
  Sender: FDA-Public Use
  Company Number: DE-UCBSA-2018026329

PATIENT
  Sex: Male

DRUGS (1)
  1. CERTOLIZUMAB PEGOL AUTOCLICKS [Suspect]
     Active Substance: CERTOLIZUMAB PEGOL
     Indication: RHEUMATOID ARTHRITIS
     Dosage: 200 MG, EV 2 WEEKS(QOW)
     Route: 058
     Dates: start: 20180203

REACTIONS (4)
  - Peripheral swelling [Recovering/Resolving]
  - Paraesthesia [Not Recovered/Not Resolved]
  - Blood uric acid increased [Unknown]
  - Gout [Unknown]

NARRATIVE: CASE EVENT DATE: 20180514
